FAERS Safety Report 5807229-6 (Version None)
Quarter: 2008Q3

REPORT INFORMATION
  Report Type: 
  Country: None (occurrence: None)
  Receive Date: 20080711
  Receipt Date: 20080709
  Transmission Date: 20090109
  Serious: Yes (Other)
  Sender: FDA-Public Use
  Company Number: D0058017A

PATIENT
  Age: 44 Year
  Sex: Female

DRUGS (1)
  1. REQUIP [Suspect]
     Indication: RESTLESS LEGS SYNDROME
     Route: 065

REACTIONS (4)
  - ANOREXIA [None]
  - NAUSEA [None]
  - SYNCOPE [None]
  - WEIGHT DECREASED [None]
